FAERS Safety Report 25750493 (Version 1)
Quarter: 2025Q3

REPORT INFORMATION
  Report Type: Spontaneous
  Country: US (occurrence: None)
  Receive Date: 20250829
  Receipt Date: 20250829
  Transmission Date: 20251020
  Serious: Yes (Other)
  Sender: FDA-CTU
  Company Number: None

PATIENT
  Sex: Female

DRUGS (4)
  1. ENBREL [Suspect]
     Active Substance: ETANERCEPT
     Indication: Rheumatoid arthritis
     Route: 058
  2. MULTIPLE VIT TAB [Concomitant]
  3. VITAMIN C  TAB 500MG [Concomitant]
  4. VITAMIN D CAP 400UNIT [Concomitant]

REACTIONS (1)
  - Therapy interrupted [None]
